FAERS Safety Report 18528715 (Version 1)
Quarter: 2020Q4

REPORT INFORMATION
  Report Type: Spontaneous
  Country: US (occurrence: US)
  Receive Date: 20201120
  Receipt Date: 20201120
  Transmission Date: 20210114
  Serious: Yes (Other)
  Sender: FDA-Public Use
  Company Number: US-PFIZER INC-2020458105

PATIENT
  Age: 50 Year
  Sex: Female

DRUGS (1)
  1. ZOLEDRONIC ACID [Suspect]
     Active Substance: ZOLEDRONIC ACID
     Indication: HYPERCALCAEMIA
     Dosage: 4 MG, MONTHLY
     Route: 042
     Dates: start: 200303, end: 200410

REACTIONS (1)
  - Glomerulonephropathy [Recovered/Resolved]

NARRATIVE: CASE EVENT DATE: 200410
